FAERS Safety Report 12635826 (Version 1)
Quarter: 2016Q3

REPORT INFORMATION
  Report Type: Spontaneous
  Country: US (occurrence: US)
  Receive Date: 20160809
  Receipt Date: 20160809
  Transmission Date: 20161109
  Serious: No
  Sender: FDA-Public Use
  Company Number: US-GLENMARK PHARMACEUTICALS INC, USA.-2016GMK022184

PATIENT

DRUGS (1)
  1. ONDANSETRON ORALLY DISINTEGRATING TABLETS [Suspect]
     Active Substance: ONDANSETRON
     Indication: PRODUCT USED FOR UNKNOWN INDICATION
     Dosage: UNK
     Route: 048

REACTIONS (3)
  - Product solubility abnormal [Unknown]
  - Product commingling [Unknown]
  - Wrong drug administered [Unknown]
